FAERS Safety Report 18273408 (Version 1)
Quarter: 2020Q3

REPORT INFORMATION
  Report Type: Spontaneous
  Country: US (occurrence: US)
  Receive Date: 20200916
  Receipt Date: 20200916
  Transmission Date: 20201103
  Serious: Yes (Hospitalization)
  Sender: FDA-Public Use
  Company Number: None

PATIENT
  Sex: Female
  Weight: 90.1 kg

DRUGS (6)
  1. METHOTREXATE. [Suspect]
     Active Substance: METHOTREXATE
     Dates: end: 20200827
  2. DAUNORUBICIN [Suspect]
     Active Substance: DAUNORUBICIN
     Dates: end: 20200827
  3. PREDNISOLONE. [Suspect]
     Active Substance: PREDNISOLONE
     Dates: end: 20200831
  4. CYTARABINE. [Suspect]
     Active Substance: CYTARABINE
     Dates: end: 20200827
  5. VINCRISTINE SULFATE. [Suspect]
     Active Substance: VINCRISTINE SULFATE
     Dates: end: 20200827
  6. ONCASPAR [Suspect]
     Active Substance: PEGASPARGASE
     Dates: end: 20200822

REACTIONS (7)
  - Haemorrhagic infarction [None]
  - Haemorrhage intracranial [None]
  - Subarachnoid haemorrhage [None]
  - Seizure [None]
  - Aphasia [None]
  - Superior sagittal sinus thrombosis [None]
  - Encephalomalacia [None]

NARRATIVE: CASE EVENT DATE: 20200901
